FAERS Safety Report 5154885-4 (Version None)
Quarter: 2006Q4

REPORT INFORMATION
  Report Type: 
  Country: None (occurrence: None)
  Receive Date: 20061121
  Receipt Date: 20061113
  Transmission Date: 20070319
  Serious: Yes (Death, Hospitalization)
  Sender: FDA-Public Use
  Company Number: US-KINGPHARMUSA00001-K200601451

PATIENT
  Age: 57 Year
  Sex: Female

DRUGS (7)
  1. SEPTRA [Suspect]
     Dosage: 960 MG, UNK
     Route: 048
     Dates: end: 20050924
  2. SINTROM [Suspect]
     Dosage: 4 MG, UNK
     Route: 048
     Dates: end: 20050924
  3. LEVOTHYROXINE SODIUM [Suspect]
     Dosage: 125 MG, QD
     Route: 048
     Dates: end: 20050924
  4. FRUSEMIDE                          /00032601/ [Suspect]
     Dosage: 40 MG, QD
     Route: 048
     Dates: end: 20050924
  5. ENALAPRIL MALEATE [Suspect]
     Dosage: 10 MG, QD
     Route: 048
     Dates: end: 20050924
  6. VALTREX [Concomitant]
  7. FLUDARABINE PHOSPHATE [Concomitant]

REACTIONS (3)
  - CEREBRAL HAEMORRHAGE [None]
  - HAEMORRHAGE [None]
  - PROTHROMBIN TIME PROLONGED [None]
